FAERS Safety Report 8272732-9 (Version None)
Quarter: 2012Q2

REPORT INFORMATION
  Report Type: 
  Country: None (occurrence: None)
  Receive Date: 20120411
  Receipt Date: 20120319
  Transmission Date: 20120825
  Serious: Yes (Hospitalization)
  Sender: FDA-Public Use
  Company Number: DE-BAXTER-2012BAX000585

PATIENT
  Age: 84 Year
  Sex: Female

DRUGS (3)
  1. PHYSIONEAL 40 GLUCOSE 1,36 % W/V 13,6 MG/ML PERITONEALDIALYSELOSUNG [Suspect]
     Route: 033
     Dates: start: 20061014
  2. EXTRANEAL [Suspect]
     Route: 033
     Dates: start: 20061014
  3. NUTRINEAL [Suspect]
     Route: 033
     Dates: start: 20061014

REACTIONS (1)
  - LOWER LIMB FRACTURE [None]
